FAERS Safety Report 8986502 (Version 2)
Quarter: 2013Q1

REPORT INFORMATION
  Report Type: Report from Study
  Country: BR (occurrence: BR)
  Receive Date: 20121226
  Receipt Date: 20130219
  Transmission Date: 20140127
  Serious: Yes (Other)
  Sender: FDA-Public Use
  Company Number: BR-ROCHE-1169445

PATIENT
  Sex: Female
  Weight: 62 kg

DRUGS (5)
  1. MABTHERA [Suspect]
     Indication: RHEUMATOID ARTHRITIS
     Route: 042
     Dates: start: 20100701, end: 20120709
  2. MABTHERA [Suspect]
     Route: 042
     Dates: start: 200908
  3. ARAVA [Concomitant]
     Indication: RHEUMATOID ARTHRITIS
  4. DIOVAN [Concomitant]
     Indication: RHEUMATOID ARTHRITIS
  5. TYLENOL [Concomitant]
     Indication: PREMEDICATION

REACTIONS (1)
  - Thyroid neoplasm [Recovering/Resolving]
